FAERS Safety Report 5890860-X (Version None)
Quarter: 2008Q3

REPORT INFORMATION
  Report Type: 
  Country: None (occurrence: None)
  Receive Date: 20080922
  Receipt Date: 20080915
  Transmission Date: 20090109
  Serious: Yes (Other)
  Sender: FDA-Public Use
  Company Number: NO-AVENTIS-200818847GDDC

PATIENT
  Sex: Female

DRUGS (6)
  1. AMARYL [Suspect]
     Route: 048
  2. LANZOPRAZOL [Concomitant]
     Route: 048
  3. SELO-ZOK [Concomitant]
     Route: 048
  4. ZOCOR [Concomitant]
     Route: 048
  5. SERETIDE [Concomitant]
     Route: 055
  6. FLUTIDE [Concomitant]
     Route: 055

REACTIONS (2)
  - HALLUCINATION, VISUAL [None]
  - HEADACHE [None]
